FAERS Safety Report 20151900 (Version 1)
Quarter: 2021Q4

REPORT INFORMATION
  Report Type: Spontaneous
  Country: US (occurrence: None)
  Receive Date: 20211204
  Receipt Date: 20211204
  Transmission Date: 20220303
  Serious: Yes (Hospitalization)
  Sender: FDA-Public Use
  Company Number: None

PATIENT
  Age: 43 Year
  Sex: Female
  Weight: 64.35 kg

DRUGS (3)
  1. ETESEVIMAB [Suspect]
     Active Substance: ETESEVIMAB
     Indication: SARS-CoV-2 test positive
     Dosage: FREQUENCY : DAILY;?
     Route: 042
     Dates: start: 20211129, end: 20211129
  2. BAMLANIVIMAB [Concomitant]
     Active Substance: BAMLANIVIMAB
     Dates: start: 20211129, end: 20211129
  3. ETESEVIMAB [Concomitant]
     Active Substance: ETESEVIMAB
     Dates: start: 20211129, end: 20211129

REACTIONS (3)
  - Infusion related reaction [None]
  - Flushing [None]
  - Dyspnoea [None]

NARRATIVE: CASE EVENT DATE: 20211129
